FAERS Safety Report 4501861-8 (Version None)
Quarter: 2004Q4

REPORT INFORMATION
  Report Type: 
  Country: None (occurrence: None)
  Receive Date: 20041115
  Receipt Date: 20041115
  Transmission Date: 20050328
  Serious: No
  Sender: FDA-Public Use
  Company Number: None

PATIENT
  Sex: Male
  Weight: 78.4723 kg

DRUGS (3)
  1. CLOZAPINE [Suspect]
     Indication: SCHIZOAFFECTIVE DISORDER
     Dosage: 300 MG BID ORAL
     Route: 048
     Dates: start: 20041005, end: 20041006
  2. QUETIAPINE [Concomitant]
  3. ESKALITH CR [Concomitant]

REACTIONS (1)
  - NEUTROPHIL COUNT DECREASED [None]
